FAERS Safety Report 22769277 (Version 4)
Quarter: 2023Q4

REPORT INFORMATION
  Report Type: Report from Study
  Country: US (occurrence: US)
  Receive Date: 20230731
  Receipt Date: 20231123
  Transmission Date: 20240110
  Serious: No
  Sender: FDA-Public Use
  Company Number: US-002147023-NVSC2023US166112

PATIENT
  Age: 60 Year
  Sex: Female

DRUGS (1)
  1. ENTRESTO [Suspect]
     Active Substance: SACUBITRIL\VALSARTAN
     Indication: Cardiac failure
     Dosage: 1 DOSAGE FORM (97/103 MG), BID
     Route: 048
     Dates: start: 202112

REACTIONS (12)
  - Weight increased [Unknown]
  - Gait disturbance [Unknown]
  - Sneezing [Unknown]
  - Decreased appetite [Unknown]
  - Abdominal distension [Unknown]
  - Dyspnoea [Unknown]
  - Pain in extremity [Unknown]
  - Back pain [Unknown]
  - Cough [Unknown]
  - Fatigue [Unknown]
  - Product dose omission issue [Unknown]
  - Nasopharyngitis [Unknown]

NARRATIVE: CASE EVENT DATE: 20230701
